FAERS Safety Report 4967180-0 (Version None)
Quarter: 2006Q2

REPORT INFORMATION
  Report Type: 
  Country: None (occurrence: None)
  Receive Date: 20060410
  Receipt Date: 20060327
  Transmission Date: 20061013
  Serious: Yes (Other)
  Sender: FDA-Public Use
  Company Number: 2006AC00669

PATIENT
  Age: 40 Year
  Sex: Female

DRUGS (6)
  1. TAMOXIFEN CITRATE [Interacting]
     Indication: BREAST CANCER
     Dates: start: 19981101, end: 20031031
  2. IRRADIATION [Interacting]
     Indication: BREAST CANCER
  3. DOXORUBICIN AND CYCLOPHOSPHAMIDE [Interacting]
     Indication: BREAST CANCER
     Dosage: 4 CYCLES
  4. PACLITAXEL [Interacting]
     Indication: BREAST CANCER
     Dosage: 4 CYCLES
  5. LETROZOLE [Suspect]
     Indication: BREAST CANCER
     Dates: start: 20040101, end: 20040118
  6. LETROZOLE [Suspect]
     Dates: start: 20040123, end: 20040127

REACTIONS (6)
  - ARTHRALGIA [None]
  - DRUG INTERACTION [None]
  - MENSTRUAL DISORDER [None]
  - MYALGIA [None]
  - OVARIAN DISORDER [None]
  - UTERINE DISORDER [None]
